FAERS Safety Report 8142608 (Version 4)
Quarter: 2016Q3

REPORT INFORMATION
  Report Type: Spontaneous
  Country: US (occurrence: US)
  Receive Date: 20110919
  Receipt Date: 20160811
  Transmission Date: 20161109
  Serious: Yes (Hospitalization, Disabling, Other)
  Sender: FDA-Public Use
  Company Number: US-BAYER-2011-084202

PATIENT
  Age: 29 Year
  Sex: Female
  Weight: 53.97 kg

DRUGS (9)
  1. ZOFRAN [Concomitant]
     Active Substance: ONDANSETRON HYDROCHLORIDE
     Dosage: 4 MG, PRN
  2. IBUPROFEN. [Concomitant]
     Active Substance: IBUPROFEN
  3. YAZ [Suspect]
     Active Substance: DROSPIRENONE\ETHINYL ESTRADIOL
     Dosage: UNK
     Dates: start: 20090402, end: 2010
  4. ADVIL [Concomitant]
     Active Substance: IBUPROFEN
     Dosage: AS NEEDED, UNK
     Route: 048
     Dates: start: 2000
  5. ATIVAN [Concomitant]
     Active Substance: LORAZEPAM
  6. RITALIN [Concomitant]
     Active Substance: METHYLPHENIDATE HYDROCHLORIDE
     Indication: DISTURBANCE IN ATTENTION
  7. FENTANYL. [Concomitant]
     Active Substance: FENTANYL
     Indication: PAIN
     Dosage: 50 MG, UNK
  8. DILANTIN [Concomitant]
     Active Substance: PHENYTOIN
  9. KLONOPIN [Concomitant]
     Active Substance: CLONAZEPAM
     Indication: ANXIETY

REACTIONS (33)
  - Status epilepticus [None]
  - Cerebrovascular accident [None]
  - Cavernous sinus thrombosis [None]
  - Dizziness [None]
  - Amnesia [None]
  - Hypoaesthesia [None]
  - Blindness [None]
  - Burning sensation [None]
  - Anhedonia [None]
  - Chest pain [None]
  - Encephalopathy [None]
  - Seizure [None]
  - Vision blurred [None]
  - Fatigue [None]
  - Paraesthesia [None]
  - Gait disturbance [None]
  - Arthralgia [None]
  - Haemorrhage intracranial [None]
  - Confusional state [None]
  - Muscular weakness [None]
  - Muscle spasms [None]
  - Impulsive behaviour [None]
  - Vertigo [None]
  - Aphasia [None]
  - Injury [None]
  - Headache [None]
  - Disturbance in attention [None]
  - Fear [None]
  - Depression [None]
  - Anxiety [None]
  - Sleep disorder [None]
  - Exercise tolerance decreased [None]
  - Memory impairment [None]

NARRATIVE: CASE EVENT DATE: 20100629
